FAERS Safety Report 6784494-2 (Version None)
Quarter: 2010Q2

REPORT INFORMATION
  Report Type: 
  Country: None (occurrence: None)
  Receive Date: 20100622
  Receipt Date: 20100610
  Transmission Date: 20101027
  Serious: Yes (Other)
  Sender: FDA-Public Use
  Company Number: FR-PFIZER INC-2010072846

PATIENT
  Age: 48 Year
  Sex: Male

DRUGS (2)
  1. CHAMPIX [Suspect]
  2. ALCOHOL [Suspect]

REACTIONS (5)
  - BRIEF PSYCHOTIC DISORDER WITH MARKED STRESSORS [None]
  - CONFUSIONAL STATE [None]
  - DELUSION OF REFERENCE [None]
  - MEMORY IMPAIRMENT [None]
  - SPEECH DISORDER [None]
